FAERS Safety Report 16757467 (Version 2)
Quarter: 2019Q3

REPORT INFORMATION
  Report Type: Spontaneous
  Country: ZA (occurrence: ZA)
  Receive Date: 20190830
  Receipt Date: 20190910
  Transmission Date: 20191005
  Serious: Yes (Other)
  Sender: FDA-Public Use
  Company Number: ZA-009507513-1908ZAF010300

PATIENT
  Sex: Female

DRUGS (2)
  1. BRIDION [Suspect]
     Active Substance: SUGAMMADEX
     Indication: NEUROMUSCULAR BLOCKADE REVERSAL
     Dosage: 2 MILLIGRAM/KILOGRAM
  2. ESMERON [Suspect]
     Active Substance: ROCURONIUM BROMIDE
     Dosage: REGULAR DOSE

REACTIONS (2)
  - Aggression [Unknown]
  - Psychotic disorder due to a general medical condition [Unknown]
